FAERS Safety Report 18417903 (Version 2)
Quarter: 2020Q4

REPORT INFORMATION
  Report Type: Spontaneous
  Country: BR (occurrence: BR)
  Receive Date: 20201022
  Receipt Date: 20201106
  Transmission Date: 20210114
  Serious: Yes (Other)
  Sender: FDA-Public Use
  Company Number: BR-BIOGEN-2020BI00938131

PATIENT

DRUGS (3)
  1. IMENSE [Concomitant]
     Indication: HYPOAESTHESIA
     Route: 064
     Dates: end: 202001
  2. TYSABRI [Suspect]
     Active Substance: NATALIZUMAB
     Indication: MATERNAL EXPOSURE TIMING UNSPECIFIED
     Route: 064
     Dates: start: 20180806, end: 202007
  3. MANTIDAN [Concomitant]
     Active Substance: AMANTADINE HYDROCHLORIDE
     Indication: FATIGUE
     Route: 064
     Dates: end: 202001

REACTIONS (2)
  - Foetal exposure during pregnancy [Recovered/Resolved]
  - Foetal growth restriction [Recovered/Resolved]

NARRATIVE: CASE EVENT DATE: 202002
